FAERS Safety Report 4893380-4 (Version None)
Quarter: 2006Q1

REPORT INFORMATION
  Report Type: 
  Country: None (occurrence: None)
  Receive Date: 20060124
  Receipt Date: 20060109
  Transmission Date: 20060701
  Serious: Yes (Hospitalization)
  Sender: FDA-Public Use
  Company Number: M04-341-151

PATIENT
  Age: 62 Year
  Sex: Male
  Weight: 117 kg

DRUGS (3)
  1. VELCADE [Suspect]
     Indication: MULTIPLE MYELOMA
     Dosage: 2.6 INTRAVENOUS
     Route: 042
     Dates: start: 20040403, end: 20040423
  2. DEXAMETHASONE [Suspect]
     Indication: MULTIPLE MYELOMA
  3. RT [Suspect]
     Indication: MULTIPLE MYELOMA

REACTIONS (10)
  - BLOOD POTASSIUM DECREASED [None]
  - CARDIAC STRESS TEST ABNORMAL [None]
  - CHRONIC OBSTRUCTIVE PULMONARY DISEASE [None]
  - CREPITATIONS [None]
  - HAEMATOCRIT DECREASED [None]
  - HAEMOGLOBIN DECREASED [None]
  - MYOCARDIAL ISCHAEMIA [None]
  - PO2 DECREASED [None]
  - TACHYCARDIA [None]
  - WEIGHT DECREASED [None]
